FAERS Safety Report 7657607-8 (Version None)
Quarter: 2011Q3

REPORT INFORMATION
  Report Type: 
  Country: None (occurrence: None)
  Receive Date: 20110804
  Receipt Date: 20110801
  Transmission Date: 20111222
  Serious: Yes (Death, Other)
  Sender: FDA-Public Use
  Company Number: US-AMGEN-USASP2011011287

PATIENT
  Age: 68 Year
  Sex: Female

DRUGS (2)
  1. NPLATE [Suspect]
     Dates: start: 20110216
  2. NPLATE [Suspect]
     Indication: IDIOPATHIC THROMBOCYTOPENIC PURPURA
     Dosage: 1 A?G/KG, UNK
     Dates: start: 20110216, end: 20110216

REACTIONS (3)
  - BONE MARROW FAILURE [None]
  - APLASTIC ANAEMIA [None]
  - PANCYTOPENIA [None]
